FAERS Safety Report 4696106-2 (Version None)
Quarter: 2005Q2

REPORT INFORMATION
  Report Type: 
  Country: None (occurrence: None)
  Receive Date: 20050620
  Receipt Date: 20050610
  Transmission Date: 20051028
  Serious: Yes (Other)
  Sender: FDA-Public Use
  Company Number: 200510497BVD

PATIENT
  Age: 43 Year
  Sex: Male
  Weight: 80 kg

DRUGS (1)
  1. CIPROSTADA        (CIPROFLOXACIN) [Suspect]
     Indication: CAMPYLOBACTER INFECTION
     Dosage: 500 MG, TOTAL DAILY, ORAL
     Route: 048

REACTIONS (2)
  - GUILLAIN-BARRE SYNDROME [None]
  - VITH NERVE PARALYSIS [None]
